FAERS Safety Report 4524380-1 (Version None)
Quarter: 2004Q4

REPORT INFORMATION
  Report Type: 
  Country: None (occurrence: None)
  Receive Date: 20041119
  Receipt Date: 20040813
  Transmission Date: 20050328
  Serious: No
  Sender: FDA-Public Use
  Company Number: 208457

PATIENT
  Age: 53 Year
  Sex: Female

DRUGS (4)
  1. RAPTIVA [Suspect]
     Dosage: SUBCUTANEOUS
     Route: 058
  2. NEURONTIN [Concomitant]
  3. ZANAFLEX [Concomitant]
  4. TRILEPTAL [Concomitant]

REACTIONS (1)
  - PSORIASIS [None]
